FAERS Safety Report 25206919 (Version 1)
Quarter: 2025Q2

REPORT INFORMATION
  Report Type: Spontaneous
  Country: US (occurrence: US)
  Receive Date: 20250417
  Receipt Date: 20250417
  Transmission Date: 20250717
  Serious: Yes (Hospitalization, Other)
  Sender: RECKITT BENCKISER
  Company Number: US-INDIVIOR EUROPE LIMITED-INDV-160443-2025

PATIENT

DRUGS (10)
  1. BUPRENORPHINE\NALOXONE [Suspect]
     Active Substance: BUPRENORPHINE\NALOXONE
     Indication: Product used for unknown indication
     Route: 065
  2. KETAMINE [Suspect]
     Active Substance: KETAMINE
     Indication: Depression
     Dosage: 100 MILLIGRAM, QD  (INTRANASAL ROUTE)
     Route: 045
  3. KETAMINE [Suspect]
     Active Substance: KETAMINE
     Indication: Pain
     Route: 045
  4. KETAMINE [Suspect]
     Active Substance: KETAMINE
     Route: 048
  5. KETAMINE [Suspect]
     Active Substance: KETAMINE
     Route: 065
  6. KETAMINE [Suspect]
     Active Substance: KETAMINE
     Route: 065
  7. KETAMINE [Suspect]
     Active Substance: KETAMINE
     Route: 065
  8. KETAMINE [Suspect]
     Active Substance: KETAMINE
     Route: 065
  9. KETAMINE [Suspect]
     Active Substance: KETAMINE
     Route: 065
  10. KETAMINE [Suspect]
     Active Substance: KETAMINE
     Route: 065

REACTIONS (7)
  - Nephrolithiasis [Unknown]
  - Drug detoxification [Unknown]
  - Drug-induced liver injury [Unknown]
  - Depression [Unknown]
  - Pain [Unknown]
  - Cystitis [Unknown]
  - Drug abuse [Unknown]
